FAERS Safety Report 5883865-6 (Version None)
Quarter: 2008Q3

REPORT INFORMATION
  Report Type: 
  Country: None (occurrence: None)
  Receive Date: 20080915
  Receipt Date: 20080909
  Transmission Date: 20090109
  Serious: Yes (Other)
  Sender: FDA-Public Use
  Company Number: US-ASTRAZENECA-2008UW18669

PATIENT
  Age: 20 Year
  Sex: Female

DRUGS (3)
  1. SEROQUEL [Suspect]
     Route: 048
     Dates: start: 20030101
  2. SEROQUEL [Suspect]
     Dosage: 75 MG AT MORNING AND AT NIGHT
     Route: 048
     Dates: start: 20080801
  3. SEROQUEL [Suspect]
     Dosage: ONE QUARTER OF A 25 MG TABLET
     Route: 048

REACTIONS (12)
  - ACNE [None]
  - CHEST PAIN [None]
  - CHOKING SENSATION [None]
  - DISTURBANCE IN ATTENTION [None]
  - EYE PAIN [None]
  - IMMUNE SYSTEM DISORDER [None]
  - INSOMNIA [None]
  - NASAL DISORDER [None]
  - RASH [None]
  - RESPIRATORY DISORDER [None]
  - TACHYCARDIA [None]
  - VISUAL ACUITY REDUCED [None]
